FAERS Safety Report 7815035-6 (Version None)
Quarter: 2011Q4

REPORT INFORMATION
  Report Type: 
  Country: None (occurrence: None)
  Receive Date: 20111014
  Receipt Date: 20110930
  Transmission Date: 20120403
  Serious: Yes (Other)
  Sender: FDA-Public Use
  Company Number: JP-SANOFI-AVENTIS-2011SA066885

PATIENT
  Age: 62 Year
  Sex: Male
  Weight: 72.6 kg

DRUGS (12)
  1. LASIX [Concomitant]
     Route: 048
     Dates: start: 20080710
  2. CEFDINIR [Concomitant]
     Indication: HYPERTENSION
     Route: 048
     Dates: start: 20080625
  3. CLOPIDOGREL BISULFATE [Suspect]
     Route: 065
     Dates: start: 20080616
  4. LANSOPRAZOLE [Concomitant]
     Route: 048
     Dates: start: 20070704
  5. CARVEDILOL [Concomitant]
     Route: 048
     Dates: start: 20080625
  6. SIGMART [Concomitant]
     Route: 048
     Dates: start: 20080625
  7. HEPARIN [Concomitant]
     Dosage: DOSE:7000 UNIT(S)
     Route: 042
     Dates: start: 20080624, end: 20080624
  8. OLMESARTAN MEDOXOMIL [Concomitant]
     Route: 048
     Dates: start: 20061113
  9. SIGMART [Concomitant]
     Route: 048
     Dates: start: 20080625
  10. ASPIRIN [Concomitant]
     Route: 048
     Dates: start: 20070628
  11. CLOPIDOGREL BISULFATE [Suspect]
     Route: 065
     Dates: start: 20080615
  12. CEFDINIR [Concomitant]
     Route: 048
     Dates: start: 20080625

REACTIONS (1)
  - CARDIAC FAILURE [None]
